FAERS Safety Report 18882495 (Version 1)
Quarter: 2021Q1

REPORT INFORMATION
  Report Type: Spontaneous
  Country: DE (occurrence: DE)
  Receive Date: 20210212
  Receipt Date: 20210212
  Transmission Date: 20210420
  Serious: Yes (Hospitalization, Other)
  Sender: FDA-Public Use
  Company Number: DE-AUROBINDO-AUR-APL-2021-005081

PATIENT
  Sex: Female
  Weight: 100 kg

DRUGS (14)
  1. MIRTAZAPINE. [Suspect]
     Active Substance: MIRTAZAPINE
     Indication: PRODUCT USED FOR UNKNOWN INDICATION
     Dosage: 15 MILLIGRAM, ONCE A DAY (15 MG, QD (EVENING)
     Route: 065
  2. DOXEPIN [Suspect]
     Active Substance: DOXEPIN
     Indication: PRODUCT USED FOR UNKNOWN INDICATION
     Dosage: UNK
     Route: 065
  3. RANITIDIN 1 A PHARMA [Suspect]
     Active Substance: RANITIDINE HYDROCHLORIDE
     Dosage: 300 MILLIGRAM
     Route: 065
     Dates: end: 202001
  4. RANITIDIN 1 A PHARMA [Suspect]
     Active Substance: RANITIDINE HYDROCHLORIDE
     Dosage: 300 MILLIGRAM
     Route: 065
     Dates: start: 201806
  5. RANITIDIN 1 A PHARMA [Suspect]
     Active Substance: RANITIDINE HYDROCHLORIDE
     Indication: CHRONIC GASTRITIS
     Dosage: 900 MILLIGRAM, ONCE A DAY (300 MG (1/2), TID (IN?PATIENT STAY IN NOV?2015)
     Route: 065
  6. RANITIDIN 1 A PHARMA [Suspect]
     Active Substance: RANITIDINE HYDROCHLORIDE
     Indication: GASTROOESOPHAGEAL REFLUX DISEASE
     Dosage: 300 MILLIGRAM
     Route: 065
     Dates: start: 1999
  7. RANITIDIN 1 A PHARMA [Suspect]
     Active Substance: RANITIDINE HYDROCHLORIDE
     Dosage: 300 MILLIGRAM
     Route: 065
     Dates: start: 201510, end: 201703
  8. NOVALGIN (METAMIZOLE SODIUM) [Suspect]
     Active Substance: METAMIZOLE SODIUM
     Indication: PAIN
     Dosage: UNK
     Route: 065
     Dates: start: 200607
  9. RANITIDIN 1 A PHARMA [Suspect]
     Active Substance: RANITIDINE HYDROCHLORIDE
     Dosage: 300 MILLIGRAM
     Route: 065
     Dates: start: 201710, end: 201802
  10. DULOXETINE. [Suspect]
     Active Substance: DULOXETINE
     Indication: FIBROMYALGIA
     Dosage: 60 MILLIGRAM, ONCE A DAY
     Route: 065
     Dates: end: 201010
  11. DULOXETINE. [Suspect]
     Active Substance: DULOXETINE
     Indication: PAIN
  12. KATADOLON [Suspect]
     Active Substance: FLUPIRTINE
     Indication: PRODUCT USED FOR UNKNOWN INDICATION
     Dosage: UNK UNK, ONCE A DAY
     Route: 065
  13. RANITIDIN 1 A PHARMA [Suspect]
     Active Substance: RANITIDINE HYDROCHLORIDE
     Indication: HIATUS HERNIA
     Dosage: 300 MILLIGRAM, ONCE A DAY (300 MG, QD (MORNING)
     Route: 065
     Dates: start: 2015
  14. TILIDIN N [Suspect]
     Active Substance: NALOXONE HYDROCHLORIDE\TILIDINE HYDROCHLORIDE
     Indication: ARTHRALGIA
     Dosage: 8 MILLIGRAM, ONCE A DAY (MORNING AND EVENING)
     Route: 065

REACTIONS (20)
  - Depression [Unknown]
  - Osteoarthritis [Unknown]
  - Dizziness [Unknown]
  - Osteophyte fracture [Unknown]
  - Pain [Unknown]
  - Fall [Unknown]
  - Erythema [Unknown]
  - Fibromyalgia [Unknown]
  - Infection [Unknown]
  - Goitre [Unknown]
  - Neurodermatitis [Unknown]
  - Myosclerosis [Unknown]
  - Visual impairment [Unknown]
  - Spinal pain [Unknown]
  - Hyperkeratosis [Unknown]
  - Osteochondrosis [Unknown]
  - Arthralgia [Unknown]
  - Telangiectasia [Unknown]
  - Radiculopathy [Recovering/Resolving]
  - Back pain [Unknown]

NARRATIVE: CASE EVENT DATE: 2007
